FAERS Safety Report 17599258 (Version 1)
Quarter: 2020Q1

REPORT INFORMATION
  Report Type: Spontaneous
  Country: US (occurrence: US)
  Receive Date: 20200327
  Receipt Date: 20200327
  Transmission Date: 20200409
  Serious: No
  Sender: FDA-Public Use
  Company Number: None

PATIENT
  Sex: Female

DRUGS (1)
  1. MAYZENT [Suspect]
     Active Substance: SIPONIMOD
     Route: 048
     Dates: start: 20191121

REACTIONS (8)
  - Cough [None]
  - Tinea infection [None]
  - Bronchitis [None]
  - Abdominal pain [None]
  - Lymphocyte count decreased [None]
  - Therapy cessation [None]
  - Lung disorder [None]
  - Faeces discoloured [None]
